FAERS Safety Report 4322574-1 (Version None)
Quarter: 2004Q1

REPORT INFORMATION
  Report Type: 
  Country: None (occurrence: None)
  Receive Date: 20040319
  Receipt Date: 20040311
  Transmission Date: 20041129
  Serious: Yes (Other)
  Sender: FDA-Public Use
  Company Number: CIP04000510

PATIENT
  Age: 70 Year
  Sex: Female

DRUGS (2)
  1. DIDRONEL [Suspect]
     Indication: OSTEOPOROSIS
     Dosage: 200 MG, ORAL
     Route: 048
  2. PREDNISOLONE [Concomitant]

REACTIONS (2)
  - CONDITION AGGRAVATED [None]
  - MYASTHENIA GRAVIS [None]
